FAERS Safety Report 5510528-9 (Version None)
Quarter: 2007Q4

REPORT INFORMATION
  Report Type: 
  Country: None (occurrence: None)
  Receive Date: 20071030
  Receipt Date: 20061205
  Transmission Date: 20080405
  Serious: Yes (Other)
  Sender: FDA-Public Use
  Company Number: HQWYE484206DEC06

PATIENT
  Age: 47 Year
  Sex: Female

DRUGS (1)
  1. PREMARIN [Suspect]
     Indication: HYSTERECTOMY
     Dosage: 0.625 MG MG 1X PER 1 DAY, ORAL
     Route: 048
     Dates: start: 19870101

REACTIONS (1)
  - DEMENTIA [None]
